FAERS Safety Report 24585273 (Version 3)
Quarter: 2024Q4

REPORT INFORMATION
  Report Type: Spontaneous
  Country: CA (occurrence: CA)
  Receive Date: 20241106
  Receipt Date: 20241114
  Transmission Date: 20250115
  Serious: Yes (Hospitalization, Other)
  Sender: JOHNSON AND JOHNSON
  Company Number: CA-JNJFOC-20241101614

PATIENT
  Age: 17 Year
  Sex: Male

DRUGS (10)
  1. REMICADE [Suspect]
     Active Substance: INFLIXIMAB
     Indication: Colitis
     Route: 041
  2. REMICADE [Suspect]
     Active Substance: INFLIXIMAB
     Indication: Colitis ulcerative
  3. ADALIMUMAB [Suspect]
     Active Substance: ADALIMUMAB
     Indication: Colitis
     Route: 058
  4. ADALIMUMAB [Suspect]
     Active Substance: ADALIMUMAB
     Indication: Colitis ulcerative
  5. BOS TAURUS ADRENAL CORTEX CORTICOSTEROIDS [Suspect]
     Active Substance: BOS TAURUS ADRENAL CORTEX CORTICOSTEROIDS
     Indication: Colitis
     Route: 048
  6. BOS TAURUS ADRENAL CORTEX CORTICOSTEROIDS [Suspect]
     Active Substance: BOS TAURUS ADRENAL CORTEX CORTICOSTEROIDS
     Route: 042
  7. AZATHIOPRINE [Suspect]
     Active Substance: AZATHIOPRINE
     Indication: Colitis
     Route: 065
  8. AZATHIOPRINE [Suspect]
     Active Substance: AZATHIOPRINE
     Indication: Colitis ulcerative
  9. TOFACITINIB [Suspect]
     Active Substance: TOFACITINIB
     Indication: Colitis
     Route: 065
  10. TOFACITINIB [Suspect]
     Active Substance: TOFACITINIB
     Route: 065

REACTIONS (5)
  - Colitis ulcerative [Recovered/Resolved]
  - Colitis [Recovered/Resolved]
  - Treatment failure [Recovered/Resolved]
  - Drug specific antibody present [Recovered/Resolved]
  - Treatment noncompliance [Recovered/Resolved]
